FAERS Safety Report 10094641 (Version 1)
Quarter: 2014Q2

REPORT INFORMATION
  Report Type: Spontaneous
  Country: US (occurrence: None)
  Receive Date: 20140421
  Receipt Date: 20140421
  Transmission Date: 20141212
  Serious: No
  Sender: FDA-Public Use
  Company Number: None

PATIENT
  Age: 54 Year
  Sex: Female

DRUGS (1)
  1. KROGER ALL-DAY ALLERGY, CETIRIZINE [Suspect]
     Indication: SEASONAL ALLERGY
     Dosage: 1 PILL, TOOK ONE PILL, TAKEN BY MOUTH
     Dates: start: 20140416

REACTIONS (7)
  - Dizziness [None]
  - Confusional state [None]
  - Feeling abnormal [None]
  - Nausea [None]
  - Malaise [None]
  - Vomiting [None]
  - Headache [None]
